FAERS Safety Report 15701480 (Version 1)
Quarter: 2018Q4

REPORT INFORMATION
  Report Type: Report from Study
  Country: None (occurrence: CO)
  Receive Date: 20181207
  Receipt Date: 20181207
  Transmission Date: 20190205
  Serious: Yes (Other)
  Sender: FDA-Public Use
  Company Number: CO-ABBVIE-18K-036-2231800-00

PATIENT
  Age: 46 Year
  Sex: Male
  Weight: 110 kg

DRUGS (1)
  1. HUMIRA [Suspect]
     Active Substance: ADALIMUMAB
     Indication: ANKYLOSING SPONDYLITIS
     Route: 058
     Dates: start: 20110218

REACTIONS (12)
  - Mobility decreased [Unknown]
  - Gait disturbance [Unknown]
  - Pruritus [Recovering/Resolving]
  - Scab [Recovering/Resolving]
  - Ankylosing spondylitis [Not Recovered/Not Resolved]
  - Skin haemorrhage [Recovering/Resolving]
  - Cellulitis [Recovering/Resolving]
  - Arthritis [Unknown]
  - Arthralgia [Unknown]
  - Skin plaque [Not Recovered/Not Resolved]
  - Arthralgia [Unknown]
  - Drug ineffective [Not Recovered/Not Resolved]

NARRATIVE: CASE EVENT DATE: 201712
